FAERS Safety Report 13381134 (Version 6)
Quarter: 2017Q4

REPORT INFORMATION
  Report Type: Spontaneous
  Country: US (occurrence: US)
  Receive Date: 20170329
  Receipt Date: 20171122
  Transmission Date: 20180320
  Serious: Yes (Hospitalization)
  Sender: FDA-Public Use
  Company Number: US-PFIZER INC-2017133870

PATIENT
  Age: 69 Year
  Sex: Female
  Weight: 47.17 kg

DRUGS (5)
  1. XALKORI [Suspect]
     Active Substance: CRIZOTINIB
     Indication: LUNG NEOPLASM MALIGNANT
     Dosage: 250 MG, TWICE A DAY
     Route: 048
     Dates: start: 201601
  2. CITRACAL /01606701/ [Concomitant]
     Indication: OSTEOPOROSIS
     Dosage: 500 MG (VITAMIN D), 630 MG (CALCIUM), ONCE A DAY
     Dates: start: 2014
  3. XALKORI [Suspect]
     Active Substance: CRIZOTINIB
     Dosage: 250 MG, 2X/DAY
     Route: 048
  4. XALKORI [Suspect]
     Active Substance: CRIZOTINIB
     Dosage: 250 MG, 2X/DAY
     Route: 048
  5. RECLAST [Concomitant]
     Active Substance: ZOLEDRONIC ACID
     Indication: OSTEOPOROSIS
     Dosage: UNK (UNKNOWN INFUSION DOSE ONCE A YEAR)

REACTIONS (6)
  - Product use in unapproved indication [Unknown]
  - Abdominal discomfort [Unknown]
  - Bacterial infection [Recovered/Resolved with Sequelae]
  - Somnolence [Not Recovered/Not Resolved]
  - Body height decreased [Unknown]
  - Nausea [Recovered/Resolved]

NARRATIVE: CASE EVENT DATE: 2016
